FAERS Safety Report 25003358 (Version 2)
Quarter: 2025Q1

REPORT INFORMATION
  Report Type: Spontaneous
  Country: CO (occurrence: CO)
  Receive Date: 20250224
  Receipt Date: 20250307
  Transmission Date: 20250409
  Serious: Yes (Hospitalization, Disabling)
  Sender: Norvium Bioscience
  Company Number: CO-Norvium Bioscience LLC-079905

PATIENT
  Age: 61 Year
  Sex: Female

DRUGS (4)
  1. GEMCITABINE [Suspect]
     Active Substance: GEMCITABINE
     Indication: Squamous cell carcinoma of the cervix
     Dates: start: 202309, end: 2024
  2. CARBOPLATIN [Suspect]
     Active Substance: CARBOPLATIN
     Indication: Squamous cell carcinoma of the cervix
     Dates: start: 2022
  3. PACLITAXEL [Concomitant]
     Active Substance: PACLITAXEL
     Indication: Squamous cell carcinoma of the cervix
     Dates: start: 2022
  4. PEMBROLIZUMAB [Concomitant]
     Active Substance: PEMBROLIZUMAB
     Indication: Squamous cell carcinoma of the cervix
     Dates: start: 2022

REACTIONS (2)
  - Extremity necrosis [Not Recovered/Not Resolved]
  - Hypersensitivity [Unknown]
